FAERS Safety Report 8448745-0 (Version None)
Quarter: 2012Q2

REPORT INFORMATION
  Report Type: 
  Country: None (occurrence: None)
  Receive Date: 20120619
  Receipt Date: 20120611
  Transmission Date: 20120825
  Serious: Yes (Hospitalization, Other)
  Sender: FDA-Public Use
  Company Number: US-ROCHE-783557

PATIENT
  Sex: Male
  Weight: 90.8 kg

DRUGS (2)
  1. ACCUTANE [Suspect]
     Route: 065
     Dates: start: 19980210, end: 19980710
  2. ACCUTANE [Suspect]
     Indication: ACNE
     Route: 065

REACTIONS (13)
  - CROHN'S DISEASE [None]
  - INFLAMMATORY BOWEL DISEASE [None]
  - ABDOMINAL PAIN [None]
  - PRURITUS [None]
  - HEADACHE [None]
  - DRY SKIN [None]
  - EPISTAXIS [None]
  - NAUSEA [None]
  - ABDOMINAL ABSCESS [None]
  - ANXIETY [None]
  - INTESTINAL HAEMORRHAGE [None]
  - DEPRESSION [None]
  - RASH [None]
